FAERS Safety Report 9258692 (Version 1)
Quarter: 2013Q2

REPORT INFORMATION
  Report Type: Spontaneous
  Country: US (occurrence: None)
  Receive Date: 20130425
  Receipt Date: 20130425
  Transmission Date: 20140414
  Serious: Yes (Other)
  Sender: FDA-Public Use
  Company Number: None

PATIENT
  Age: 77 Year
  Sex: Female
  Weight: 72.3 kg

DRUGS (1)
  1. PONATINIB [Suspect]
     Indication: CHRONIC MYELOID LEUKAEMIA
     Dosage: 15 MG QD EXCEPT MON. + FRI., PO
     Dates: start: 20120709, end: 20120805

REACTIONS (2)
  - Hyponatraemia [None]
  - Anaemia [None]
